FAERS Safety Report 12980528 (Version 1)
Quarter: 2016Q4

REPORT INFORMATION
  Report Type: Spontaneous
  Country: PT (occurrence: DK)
  Receive Date: 20161128
  Receipt Date: 20161128
  Transmission Date: 20170207
  Serious: Yes (Other)
  Sender: FDA-Public Use
  Company Number: PT-SUNOVION-2016SUN002955

PATIENT

DRUGS (4)
  1. ZEBINIX [Suspect]
     Active Substance: ESLICARBAZEPINE ACETATE
     Indication: PRODUCT USED FOR UNKNOWN INDICATION
     Dosage: 400 MG, DAILY
     Route: 048
     Dates: start: 201602, end: 201611
  2. FYCOMPA [Interacting]
     Active Substance: PERAMPANEL
     Indication: PRODUCT USED FOR UNKNOWN INDICATION
     Dosage: 4 MG, QD
     Route: 048
     Dates: start: 201509, end: 201611
  3. FYCOMPA [Interacting]
     Active Substance: PERAMPANEL
     Dosage: DOWN-TITRATING (DOSE UNSPECIFIED)
     Route: 048
     Dates: start: 201611
  4. ZEBINIX [Interacting]
     Active Substance: ESLICARBAZEPINE ACETATE
     Dosage: DOWN-TITRATING (DOSE UNSPECIFIED)
     Route: 048
     Dates: start: 201611

REACTIONS (2)
  - Drug interaction [Unknown]
  - Interstitial lung disease [Unknown]

NARRATIVE: CASE EVENT DATE: 2016
